FAERS Safety Report 20255860 (Version 1)
Quarter: 2021Q4

REPORT INFORMATION
  Report Type: Spontaneous
  Country: US (occurrence: US)
  Receive Date: 20211230
  Receipt Date: 20211230
  Transmission Date: 20220304
  Serious: Yes (Death, Other)
  Sender: FDA-Public Use
  Company Number: US-GLAXOSMITHKLINE-US2021AMR264912

PATIENT
  Age: 74 Year
  Sex: Female

DRUGS (2)
  1. FLOLAN [Suspect]
     Active Substance: EPOPROSTENOL SODIUM
     Indication: Pulmonary arterial hypertension
     Dosage: UNK, FLOLAN DOSE AT TIME OF AE/PC: 28 NG/KG/MIN, PUMP RATE: 75 ML/DAY, VIAL STRENGTH: 1.5 MG
     Dates: start: 20070131
  2. GLYCINE\MANNITOL\SODIUM CHLORIDE [Suspect]
     Active Substance: GLYCINE\MANNITOL\SODIUM CHLORIDE
     Indication: Pulmonary arterial hypertension
     Dosage: UNK
     Dates: start: 20170201

REACTIONS (3)
  - Death [Fatal]
  - Respiratory arrest [Unknown]
  - Pneumonia [Unknown]

NARRATIVE: CASE EVENT DATE: 20211226
